FAERS Safety Report 11174730 (Version 1)
Quarter: 2015Q2

REPORT INFORMATION
  Report Type: Spontaneous
  Country: US (occurrence: None)
  Receive Date: 20150608
  Receipt Date: 20150608
  Transmission Date: 20150821
  Serious: No
  Sender: FDA-Public Use
  Company Number: None

PATIENT
  Age: 34 Year
  Sex: Female
  Weight: 72.58 kg

DRUGS (6)
  1. BIOTIN [Concomitant]
     Active Substance: BIOTIN
  2. PROTONIX [Concomitant]
     Active Substance: PANTOPRAZOLE SODIUM
  3. D3 [Concomitant]
     Active Substance: 25-HYDROXYCHOLECALCIFEROL, 5-TRANS-
  4. PRENATAL VITAMINS [Concomitant]
     Active Substance: VITAMINS
  5. MULTI VITAMINS [Concomitant]
  6. HUMIRA [Suspect]
     Active Substance: ADALIMUMAB
     Indication: CROHN^S DISEASE
     Dosage: 1 SHOT EVERY 2 WEEKS, GIVEN INTO/UNDER SKIN
     Route: 058
     Dates: start: 20150417, end: 20150604

REACTIONS (3)
  - Alopecia [None]
  - Skin disorder [None]
  - Burning sensation [None]

NARRATIVE: CASE EVENT DATE: 20150504
